FAERS Safety Report 7950672-X (Version None)
Quarter: 2011Q4

REPORT INFORMATION
  Report Type: 
  Country: None (occurrence: None)
  Receive Date: 20111201
  Receipt Date: 20111121
  Transmission Date: 20120403
  Serious: Yes (Hospitalization)
  Sender: FDA-Public Use
  Company Number: US-BAYER-2011-053609

PATIENT
  Age: 39 Year
  Sex: Female
  Weight: 76 kg

DRUGS (8)
  1. YAZ [Suspect]
     Indication: CONTRACEPTION
     Dosage: UNK
     Route: 048
     Dates: start: 20060614, end: 20090813
  2. ATIVAN [Concomitant]
     Dosage: 1 MG, PRN
     Dates: start: 20090801
  3. YASMIN [Suspect]
     Indication: MENORRHAGIA
  4. FOLIC ACID [Concomitant]
     Dosage: 2 MG, QD
     Dates: start: 20090801
  5. YAZ [Suspect]
     Indication: MENORRHAGIA
  6. YASMIN [Suspect]
     Indication: CONTRACEPTION
     Dosage: UNK
     Dates: start: 20031030, end: 20050301
  7. BENTYL [Concomitant]
     Dosage: UNK
     Dates: end: 20090101
  8. PROTONIX [Concomitant]
     Indication: GASTRITIS
     Dosage: 40 MG, QD
     Dates: start: 20000101, end: 20090813

REACTIONS (2)
  - PULMONARY EMBOLISM [None]
  - DEEP VEIN THROMBOSIS [None]
